FAERS Safety Report 15339772 (Version 2)
Quarter: 2018Q4

REPORT INFORMATION
  Report Type: Spontaneous
  Country: PT (occurrence: PT)
  Receive Date: 20180831
  Receipt Date: 20181012
  Transmission Date: 20190204
  Serious: Yes (Other)
  Sender: FDA-Public Use
  Company Number: PT-009507513-1808PRT009704

PATIENT
  Age: 37 Year
  Sex: Female

DRUGS (1)
  1. IMPLANON [Suspect]
     Active Substance: ETONOGESTREL
     Indication: CONTRACEPTION
     Dosage: UNK
     Dates: start: 20041116

REACTIONS (1)
  - Twin pregnancy [Unknown]

NARRATIVE: CASE EVENT DATE: 20080324
